FAERS Safety Report 9151984 (Version 1)
Quarter: 2013Q1

REPORT INFORMATION
  Report Type: Spontaneous
  Country: US (occurrence: US)
  Receive Date: 20130308
  Receipt Date: 20130308
  Transmission Date: 20140127
  Serious: No
  Sender: FDA-Public Use
  Company Number: US-GLAXOSMITHKLINE-A1004649A

PATIENT
  Age: 66 Year
  Sex: Female

DRUGS (4)
  1. TARGET ORIGINAL 2MG [Suspect]
     Indication: EX-TOBACCO USER
  2. EQUATE NICOTINE [Suspect]
     Indication: EX-TOBACCO USER
  3. NICORETTE [Suspect]
     Indication: EX-TOBACCO USER
  4. NICORETTE [Suspect]
     Indication: EX-TOBACCO USER

REACTIONS (3)
  - Intentional drug misuse [Not Recovered/Not Resolved]
  - Nicotine dependence [Not Recovered/Not Resolved]
  - Intentional drug misuse [Recovered/Resolved]
